FAERS Safety Report 23567175 (Version 1)
Quarter: 2024Q1

REPORT INFORMATION
  Report Type: Spontaneous
  Country: CN (occurrence: CN)
  Receive Date: 20240226
  Receipt Date: 20240226
  Transmission Date: 20240410
  Serious: Yes (Other)
  Sender: FDA-Public Use
  Company Number: CN-PFIZER INC-PV202400025452

PATIENT
  Age: 2 Year
  Sex: Male
  Weight: 13 kg

DRUGS (1)
  1. CYTARABINE [Suspect]
     Active Substance: CYTARABINE
     Indication: Acute lymphocytic leukaemia
     Dosage: 27 MG, 1X/DAY
     Route: 041
     Dates: start: 20240202, end: 20240208

REACTIONS (2)
  - Myelosuppression [Recovering/Resolving]
  - Nosocomial infection [Unknown]

NARRATIVE: CASE EVENT DATE: 20240210
